FAERS Safety Report 11809015 (Version 3)
Quarter: 2017Q4

REPORT INFORMATION
  Report Type: Spontaneous
  Country: NO (occurrence: NO)
  Receive Date: 20151207
  Receipt Date: 20171009
  Transmission Date: 20180320
  Serious: Yes (Life-Threatening, Hospitalization, Other)
  Sender: FDA-Public Use
  Company Number: NO-SA-2015SA201542

PATIENT
  Age: 64 Year
  Sex: Male
  Weight: 95 kg

DRUGS (8)
  1. PLACEBO [Suspect]
     Active Substance: UNSPECIFIED INGREDIENT
     Indication: HYPERLIPIDAEMIA
     Route: 058
     Dates: start: 20150316, end: 20150330
  2. METOPROLOL. [Concomitant]
     Active Substance: METOPROLOL
     Indication: CORONARY ARTERY DISEASE
     Route: 048
     Dates: start: 2005
  3. ALBYL-E [Suspect]
     Active Substance: ASPIRIN\MAGNESIUM OXIDE
     Indication: CORONARY ARTERY DISEASE
     Route: 048
     Dates: start: 1998, end: 20150411
  4. EZETROL [Concomitant]
     Active Substance: EZETIMIBE
     Indication: TYPE IIA HYPERLIPIDAEMIA
     Route: 048
     Dates: start: 2003
  5. PLACEBO [Suspect]
     Active Substance: UNSPECIFIED INGREDIENT
     Indication: ACQUIRED MIXED HYPERLIPIDAEMIA
     Route: 058
     Dates: start: 20150316, end: 20150330
  6. COZAAR COMP [Concomitant]
     Active Substance: HYDROCHLOROTHIAZIDE\LOSARTAN POTASSIUM
     Indication: HYPERTENSION
     Dosage: 50/12.5 MG
     Route: 048
     Dates: start: 2007
  7. KLEXANE [Suspect]
     Active Substance: ENOXAPARIN
     Indication: PROPHYLAXIS
     Route: 065
     Dates: start: 201505, end: 201509
  8. CRESTOR [Concomitant]
     Active Substance: ROSUVASTATIN CALCIUM
     Indication: TYPE IIA HYPERLIPIDAEMIA
     Route: 048
     Dates: start: 2004

REACTIONS (25)
  - Palpitations [Unknown]
  - Vomiting [Unknown]
  - Somnolence [Unknown]
  - Renal failure [Recovered/Resolved]
  - Oedema peripheral [Not Recovered/Not Resolved]
  - Nausea [Unknown]
  - Ejection fraction decreased [Unknown]
  - Oedema peripheral [Unknown]
  - Subarachnoid haemorrhage [Recovered/Resolved]
  - Confusional state [Unknown]
  - Gastric ulcer [Recovered/Resolved]
  - Pulmonary hypertension [Recovered/Resolved]
  - Dyspnoea [Not Recovered/Not Resolved]
  - Blood creatinine increased [Not Recovered/Not Resolved]
  - Left ventricular hypertrophy [Unknown]
  - Disorientation [Unknown]
  - Multiple organ dysfunction syndrome [Unknown]
  - Headache [Unknown]
  - Pyrexia [Unknown]
  - Acute respiratory distress syndrome [Not Recovered/Not Resolved]
  - Pleural effusion [Recovered/Resolved]
  - Cardiac failure [Recovering/Resolving]
  - Pneumonia [Unknown]
  - Musculoskeletal stiffness [Unknown]
  - Chronic kidney disease [Not Recovered/Not Resolved]

NARRATIVE: CASE EVENT DATE: 2015
